FAERS Safety Report 22219421 (Version 1)
Quarter: 2023Q2

REPORT INFORMATION
  Report Type: Spontaneous
  Country: US (occurrence: None)
  Receive Date: 20230416
  Receipt Date: 20230416
  Transmission Date: 20230722
  Serious: Yes (Disabling, Other)
  Sender: FDA-Public Use
  Company Number: None

PATIENT
  Age: 68 Year
  Sex: Female
  Weight: 57.15 kg

DRUGS (1)
  1. LEVAQUIN [Suspect]
     Active Substance: LEVOFLOXACIN
     Indication: Bronchitis
     Dosage: FREQUENCY : DAILY;?
     Route: 048
     Dates: start: 20230321, end: 20230326

REACTIONS (9)
  - Joint swelling [None]
  - Peripheral swelling [None]
  - Peripheral swelling [None]
  - Gait inability [None]
  - Weight bearing difficulty [None]
  - Pain in extremity [None]
  - Presyncope [None]
  - Nerve injury [None]
  - Erythema [None]

NARRATIVE: CASE EVENT DATE: 20230323
